FAERS Safety Report 25021693 (Version 2)
Quarter: 2025Q2

REPORT INFORMATION
  Report Type: Report from Study
  Country: US (occurrence: US)
  Receive Date: 20250228
  Receipt Date: 20250512
  Transmission Date: 20250717
  Serious: No
  Sender: SUNOVION
  Company Number: US-SUMITOMO PHARMA SWITZERLAND GMBH-2025SPA001292

PATIENT

DRUGS (2)
  1. ORGOVYX [Suspect]
     Active Substance: RELUGOLIX
     Indication: Prostate cancer
     Dosage: 120 MG, QD
     Route: 048
     Dates: start: 20250109
  2. OZONE [Concomitant]
     Active Substance: OZONE
     Route: 065

REACTIONS (5)
  - Glucose tolerance impaired [Unknown]
  - Prostatic specific antigen increased [Unknown]
  - Dysuria [Unknown]
  - Hot flush [Unknown]
  - Therapy interrupted [Unknown]
